FAERS Safety Report 20304987 (Version 1)
Quarter: 2022Q1

REPORT INFORMATION
  Report Type: Other
  Country: LK (occurrence: None)
  Receive Date: 20220106
  Receipt Date: 20220106
  Transmission Date: 20220423
  Serious: Yes (Death)
  Sender: FDA-Public Use
  Company Number: LK-ROCHE-2992302

PATIENT
  Age: 24 Year
  Sex: Female

DRUGS (1)
  1. TOCILIZUMAB [Suspect]
     Active Substance: TOCILIZUMAB
     Indication: COVID-19 pneumonia
     Route: 042

REACTIONS (3)
  - COVID-19 pneumonia [Fatal]
  - Off label use [Unknown]
  - Maternal exposure during pregnancy [Unknown]
